FAERS Safety Report 9395147 (Version 2)
Quarter: 2013Q3

REPORT INFORMATION
  Report Type: Report from Study
  Country: AR (occurrence: AR)
  Receive Date: 20130711
  Receipt Date: 20130723
  Transmission Date: 20140515
  Serious: Yes (Life-Threatening, Hospitalization)
  Sender: FDA-Public Use
  Company Number: AR-INCYTE CORPORATION-2013IN001408

PATIENT
  Age: 65 Year
  Sex: Male
  Weight: 79.5 kg

DRUGS (5)
  1. INC424 [Suspect]
     Indication: MYELOFIBROSIS
     Dosage: 20 MG, BID
     Route: 048
     Dates: start: 20130429, end: 20130610
  2. INC424 [Suspect]
     Dosage: 10 MG, BID
     Route: 048
     Dates: start: 20130611, end: 20130627
  3. INC424 [Suspect]
     Dosage: 5 MG, BID
     Route: 048
     Dates: start: 20130628, end: 20130629
  4. INC424 [Suspect]
     Dosage: 5 MG, QD
     Route: 048
     Dates: start: 20130630, end: 20130630
  5. ASPIRIN [Suspect]

REACTIONS (1)
  - Pericardial haemorrhage [Recovering/Resolving]
